FAERS Safety Report 18840307 (Version 1)
Quarter: 2021Q1

REPORT INFORMATION
  Report Type: Spontaneous
  Country: US (occurrence: US)
  Receive Date: 20210203
  Receipt Date: 20210203
  Transmission Date: 20210419
  Serious: No
  Sender: FDA-Public Use
  Company Number: US-PRAGMA-2020-US-023493

PATIENT
  Age: 84 Year
  Sex: Female
  Weight: 70.31 kg

DRUGS (5)
  1. KEFLEX [Suspect]
     Active Substance: CEPHALEXIN
     Indication: URINARY TRACT INFECTION
     Dosage: ONE CAPSULE PER DAY
     Route: 065
     Dates: start: 2017, end: 202005
  2. TENDEROL [Concomitant]
  3. ACYCLOVIR. [Concomitant]
     Active Substance: ACYCLOVIR
  4. LOSARTAN. [Concomitant]
     Active Substance: LOSARTAN
  5. COLESTEPOL [Concomitant]

REACTIONS (2)
  - Drug ineffective [Recovered/Resolved]
  - Pain [Recovered/Resolved]

NARRATIVE: CASE EVENT DATE: 2017
